FAERS Safety Report 4570508-7 (Version None)
Quarter: 2005Q1

REPORT INFORMATION
  Report Type: 
  Country: None (occurrence: None)
  Receive Date: 20050203
  Receipt Date: 20050203
  Transmission Date: 20050727
  Serious: Yes (Other)
  Sender: FDA-Public Use
  Company Number: None

PATIENT
  Sex: Male
  Weight: 112.9457 kg

DRUGS (1)
  1. ENBREL [Suspect]
     Indication: SPONDYLOARTHROPATHY
     Dosage: 25 MG   TWICE WEEKLY   SUBCUTANEO
     Route: 058
     Dates: start: 20030201, end: 20050112

REACTIONS (4)
  - CRANIAL NEUROPATHY [None]
  - DIPLOPIA [None]
  - DYSPHONIA [None]
  - TONGUE PARALYSIS [None]
